FAERS Safety Report 4363790-2 (Version None)
Quarter: 2004Q2

REPORT INFORMATION
  Report Type: 
  Country: None (occurrence: None)
  Receive Date: 20040524
  Receipt Date: 20040518
  Transmission Date: 20050107
  Serious: Yes (Other)
  Sender: FDA-Public Use
  Company Number: JP-MERCK-0405USA01510

PATIENT
  Age: 9 Year
  Sex: Female

DRUGS (6)
  1. PEPCID [Suspect]
     Indication: PANCREATITIS ACUTE
     Route: 042
  2. PROBIOTICS (UNSPECIFIED) [Concomitant]
     Route: 065
  3. ALLOID [Suspect]
     Route: 065
  4. SUCRALFATE [Suspect]
     Route: 065
  5. SULFAMETHOXAZOLE AND TRIMETHOPRIM [Concomitant]
     Route: 065
  6. TEPRENONE [Concomitant]
     Route: 065

REACTIONS (9)
  - BEZOAR [None]
  - COMA [None]
  - DEPRESSED LEVEL OF CONSCIOUSNESS [None]
  - GASTRIC PH INCREASED [None]
  - GASTRITIS [None]
  - GASTRITIS HAEMORRHAGIC [None]
  - GASTROINTESTINAL HAEMORRHAGE [None]
  - PANCREATITIS [None]
  - PNEUMATOSIS [None]
